FAERS Safety Report 17210705 (Version 1)
Quarter: 2019Q4

REPORT INFORMATION
  Report Type: Report from Study
  Country: CA (occurrence: CA)
  Receive Date: 20191227
  Receipt Date: 20191227
  Transmission Date: 20200122
  Serious: Yes (Other)
  Sender: FDA-Public Use
  Company Number: CA-VERTEX PHARMACEUTICALS-2019-011736

PATIENT
  Age: 19 Year
  Sex: Male

DRUGS (1)
  1. SYMDEKO [Suspect]
     Active Substance: IVACAFTOR\TEZACAFTOR
     Indication: CYSTIC FIBROSIS
     Dosage: 100 MG TEZA/150 MG IVA AND 150 MG IVA TABLETS, BID
     Route: 048
     Dates: start: 20191016, end: 20191105

REACTIONS (2)
  - Hepatic cirrhosis [Unknown]
  - Ascites [Unknown]

NARRATIVE: CASE EVENT DATE: 201910
